FAERS Safety Report 7374804-X (Version None)
Quarter: 2011Q1

REPORT INFORMATION
  Report Type: 
  Country: None (occurrence: None)
  Receive Date: 20110325
  Receipt Date: 20110228
  Transmission Date: 20110831
  Serious: No
  Sender: FDA-Public Use
  Company Number: US-MYLANLABS-2010S1022278

PATIENT
  Age: 37 Year
  Sex: Female

DRUGS (5)
  1. CYMBALTA [Concomitant]
  2. FENTANYL-100 [Suspect]
     Indication: PAIN
     Dosage: CHANGED Q48H
     Route: 062
  3. OXYCODONE [Concomitant]
  4. ABILIFY [Concomitant]
  5. FENTANYL-100 [Suspect]
     Indication: FIBROMYALGIA
     Dosage: CHANGED Q48H
     Route: 062

REACTIONS (2)
  - APPLICATION SITE BURN [None]
  - APPLICATION SITE RASH [None]
